FAERS Safety Report 6137464-1 (Version None)
Quarter: 2009Q1

REPORT INFORMATION
  Report Type: 
  Country: None (occurrence: None)
  Receive Date: 20090326
  Receipt Date: 20090316
  Transmission Date: 20090719
  Serious: Yes (Hospitalization)
  Sender: FDA-Public Use
  Company Number: 2009SP001691

PATIENT
  Age: 38 Year
  Sex: Male

DRUGS (11)
  1. TEMODAL [Suspect]
     Indication: GLIOMA
     Dosage: 400 MG;PO ; PO ; PO
     Route: 048
     Dates: start: 20090115, end: 20090119
  2. TEMODAL [Suspect]
     Indication: GLIOMA
     Dosage: 400 MG;PO ; PO ; PO
     Route: 048
     Dates: start: 20081101
  3. TEMODAL [Suspect]
     Indication: GLIOMA
     Dosage: 400 MG;PO ; PO ; PO
     Route: 048
     Dates: start: 20081217
  4. HERMOLEPSIN RETARD [Concomitant]
  5. KEPPRA [Concomitant]
  6. XANOR [Concomitant]
  7. PROPAVAN [Concomitant]
  8. EFFEXOR [Concomitant]
  9. DICLOFENAC [Concomitant]
  10. PAMOL [Concomitant]
  11. ZOPIKLON [Concomitant]

REACTIONS (3)
  - NIGHTMARE [None]
  - PANCREATITIS [None]
  - STATUS EPILEPTICUS [None]
